FAERS Safety Report 23170148 (Version 2)
Quarter: 2023Q4

REPORT INFORMATION
  Report Type: Report from Study
  Country: ZA (occurrence: ZA)
  Receive Date: 20231110
  Receipt Date: 20231120
  Transmission Date: 20240110
  Serious: Yes (Death, Other)
  Sender: FDA-Public Use
  Company Number: ZA-BAYER-2023A160064

PATIENT
  Sex: Female

DRUGS (2)
  1. EYLEA [Suspect]
     Active Substance: AFLIBERCEPT
     Indication: Neovascular age-related macular degeneration
     Dosage: 1X VIAL (RIGHT EYE), SOLUTION FOR INJECTION, 40 MG/ML
     Dates: start: 20230126, end: 20230126
  2. EYLEA [Suspect]
     Active Substance: AFLIBERCEPT
     Dosage: 1X VIAL (RIGHT EYE), SOLUTION FOR INJECTION, 40 MG/ML
     Dates: start: 20230824, end: 20230824

REACTIONS (1)
  - Lung neoplasm malignant [Fatal]

NARRATIVE: CASE EVENT DATE: 20231108
